FAERS Safety Report 12068352 (Version 1)
Quarter: 2016Q1

REPORT INFORMATION
  Report Type: Spontaneous
  Country: US (occurrence: US)
  Receive Date: 20160211
  Receipt Date: 20160211
  Transmission Date: 20160526
  Serious: No
  Sender: FDA-Public Use
  Company Number: US-SMITH AND NEPHEW, INC-2015SMT00555

PATIENT
  Age: 65 Year
  Sex: Male
  Weight: 95.24 kg

DRUGS (12)
  1. UNSPECIFIED PAIN KILLER [Concomitant]
  2. INSULIN [Concomitant]
     Active Substance: INSULIN NOS
  3. CARVEDILOL. [Concomitant]
     Active Substance: CARVEDILOL
  4. ISOSORB [Concomitant]
  5. HYDRO-ACETAMINOPHEN [Concomitant]
  6. ASPIRIN. [Concomitant]
     Active Substance: ASPIRIN
  7. GABAPENTIN. [Concomitant]
     Active Substance: GABAPENTIN
  8. CALCIUM ACETATE. [Concomitant]
     Active Substance: CALCIUM ACETATE
  9. MIDODRINE [Concomitant]
     Active Substance: MIDODRINE
     Dosage: UNK, 3X/WEEK
  10. VITAMIN D [Concomitant]
     Active Substance: CHOLECALCIFEROL
  11. REGRANEX [Suspect]
     Active Substance: BECAPLERMIN
     Indication: WOUND
     Dosage: UNK, 1X/DAY
     Route: 061
     Dates: start: 201511, end: 20151111
  12. LANTUS [Concomitant]
     Active Substance: INSULIN GLARGINE
     Dosage: 40 U, 1X/DAY

REACTIONS (2)
  - Application site discharge [Not Recovered/Not Resolved]
  - Application site erythema [Unknown]

NARRATIVE: CASE EVENT DATE: 201511
